FAERS Safety Report 7535777-X (Version None)
Quarter: 2011Q2

REPORT INFORMATION
  Report Type: 
  Country: None (occurrence: None)
  Receive Date: 20110609
  Receipt Date: 20110330
  Transmission Date: 20111010
  Serious: No
  Sender: FDA-Public Use
  Company Number: US-KINGPHARMUSA00001-K201100364

PATIENT
  Sex: Male

DRUGS (2)
  1. EMBEDA [Suspect]
     Indication: NEURALGIA
     Dosage: 50 MG, BID
     Dates: start: 20110201, end: 20110101
  2. LISINOPRIL [Concomitant]
     Indication: HYPERTENSION
     Dosage: 20 MG, QD

REACTIONS (6)
  - CONSTIPATION [None]
  - DRUG INEFFECTIVE [None]
  - EPISTAXIS [None]
  - BLOOD PRESSURE INCREASED [None]
  - HEADACHE [None]
  - FEELING ABNORMAL [None]
